FAERS Safety Report 26046225 (Version 1)
Quarter: 2025Q4

REPORT INFORMATION
  Report Type: Spontaneous
  Country: US (occurrence: US)
  Receive Date: 20251114
  Receipt Date: 20251114
  Transmission Date: 20260117
  Serious: Yes (Hospitalization)
  Sender: HIKMA
  Company Number: US-HIKMA PHARMACEUTICALS USA INC.-US-H14001-24-11932

PATIENT
  Sex: Female

DRUGS (2)
  1. PHENOBARBITAL [Suspect]
     Active Substance: PHENOBARBITAL
     Dosage: 75 MILLIGRAM, 2 IN MORNING, 2 IN THE AFTERNOON AND 1 AT NIGHT, ALL OTHER DAYS OF THE WEEK
     Route: 048
  2. PHENOBARBITAL [Suspect]
     Active Substance: PHENOBARBITAL
     Indication: Seizure
     Dosage: 90 MILLIGRAM, 2 IN IN MORNING, 2 IN THE AFTERNOON AND 2 AT NIGHT ON MONDAY
     Route: 048

REACTIONS (4)
  - Loss of consciousness [Unknown]
  - Cerebral haemorrhage [Unknown]
  - Haemoglobin abnormal [Unknown]
  - Red blood cell count decreased [Unknown]
